FAERS Safety Report 5532036-1 (Version None)
Quarter: 2007Q4

REPORT INFORMATION
  Report Type: 
  Country: None (occurrence: None)
  Receive Date: 20071203
  Receipt Date: 20071128
  Transmission Date: 20080405
  Serious: Yes (Life-Threatening, Congenital Anomaly)
  Sender: FDA-Public Use
  Company Number: A0664380A

PATIENT
  Sex: Male

DRUGS (2)
  1. PAXIL CR [Suspect]
     Indication: DEPRESSION
     Dates: start: 20021016, end: 20030101
  2. PRENATAL VITAMINS [Concomitant]

REACTIONS (10)
  - APNOEA [None]
  - CARDIAC FAILURE [None]
  - DRUG EXPOSURE DURING PREGNANCY [None]
  - DYSPNOEA [None]
  - FLUID RETENTION [None]
  - HEART DISEASE CONGENITAL [None]
  - HYPERTENSION [None]
  - HYPOPLASTIC RIGHT HEART SYNDROME [None]
  - LUNG DISORDER [None]
  - TRICUSPID VALVE DISEASE [None]
